FAERS Safety Report 11497715 (Version 1)
Quarter: 2015Q3

REPORT INFORMATION
  Report Type: Spontaneous
  Country: DE (occurrence: DE)
  Receive Date: 20150911
  Receipt Date: 20150911
  Transmission Date: 20151125
  Serious: Yes (Life-Threatening, Hospitalization, Disabling)
  Sender: FDA-Public Use
  Company Number: GXKR2015DE004213

PATIENT

DRUGS (2)
  1. AZATHIOPRINE. [Suspect]
     Active Substance: AZATHIOPRINE
     Indication: PULMONARY SARCOIDOSIS
     Dosage: 100 MG, QD
     Route: 048
     Dates: start: 20120118, end: 20131223
  2. PREDNISOLONE. [Suspect]
     Active Substance: PREDNISOLONE
     Indication: PULMONARY SARCOIDOSIS
     Dosage: 20 MG, UNK
     Route: 048
     Dates: start: 20111221, end: 20131223

REACTIONS (2)
  - Leukoencephalopathy [Recovering/Resolving]
  - JC virus test positive [Unknown]

NARRATIVE: CASE EVENT DATE: 20131210
